FAERS Safety Report 4928175-6 (Version None)
Quarter: 2006Q1

REPORT INFORMATION
  Report Type: 
  Country: None (occurrence: None)
  Receive Date: 20060223
  Receipt Date: 20060208
  Transmission Date: 20060701
  Serious: Yes (Life-Threatening, Other)
  Sender: FDA-Public Use
  Company Number: FR200511002720

PATIENT
  Age: 76 Year
  Sex: Male
  Weight: 66 kg

DRUGS (4)
  1. ALIMTA [Suspect]
     Indication: PLEURAL MESOTHELIOMA MALIGNANT
     Dosage: 900 MG, OTHER INTRAVENOUS
     Route: 042
     Dates: start: 20050926
  2. CISPLATIN [Concomitant]
  3. FOLIC ACID [Concomitant]
  4. VITAMIN B12 [Concomitant]

REACTIONS (5)
  - BONE MARROW FAILURE [None]
  - DISEASE PROGRESSION [None]
  - GENERAL PHYSICAL HEALTH DETERIORATION [None]
  - MUCOSAL INFLAMMATION [None]
  - PYREXIA [None]
